FAERS Safety Report 5466256-1 (Version None)
Quarter: 2007Q3

REPORT INFORMATION
  Report Type: 
  Country: None (occurrence: None)
  Receive Date: 20070924
  Receipt Date: 20070912
  Transmission Date: 20080115
  Serious: Yes (Death, Other)
  Sender: FDA-Public Use
  Company Number: US-PFIZER INC-2007077346

PATIENT
  Age: 46 Year
  Sex: Female

DRUGS (5)
  1. XANAX [Suspect]
     Indication: PAIN
  2. DIAZEPAM [Suspect]
     Indication: PAIN
  3. PERCOCET [Suspect]
     Indication: PAIN
     Dates: end: 20021001
  4. OXYCONTIN [Suspect]
     Indication: PAIN
  5. SOMA [Suspect]
     Indication: PAIN

REACTIONS (2)
  - LOSS OF CONSCIOUSNESS [None]
  - OVERDOSE [None]
